FAERS Safety Report 15776188 (Version 26)
Quarter: 2020Q4

REPORT INFORMATION
  Report Type: Report from Study
  Country: US (occurrence: US)
  Receive Date: 20181231
  Receipt Date: 20201228
  Transmission Date: 20210113
  Serious: No
  Sender: FDA-Public Use
  Company Number: US-IPSEN BIOPHARMACEUTICALS, INC.-2018-16861

PATIENT
  Age: 4 Year
  Sex: Male
  Weight: 16.8 kg

DRUGS (9)
  1. BACLOFEN. [Concomitant]
     Active Substance: BACLOFEN
     Dosage: 10 MG QHS (EVERY NIGHT AT BEDTIME)
     Route: 048
     Dates: start: 20160325
  2. AMOXIL [Concomitant]
     Active Substance: AMOXICILLIN
     Indication: OTITIS MEDIA
     Dates: start: 20191202, end: 20191212
  3. ALBUTEROL. [Concomitant]
     Active Substance: ALBUTEROL
     Indication: WHEEZING
     Dosage: 3 MG (ONGOING)
     Route: 055
     Dates: start: 20171108
  4. DYSPORT [Suspect]
     Active Substance: ABOBOTULINUMTOXINA
     Indication: OFF LABEL USE
  5. ALBUTEROL. [Concomitant]
     Active Substance: ALBUTEROL
     Indication: ASTHMA
  6. BACLOFEN. [Concomitant]
     Active Substance: BACLOFEN
     Indication: MUSCLE SPASTICITY
     Dosage: ONGOING
     Dates: start: 20160325
  7. CLARITIN [Concomitant]
     Active Substance: LORATADINE
     Indication: URTICARIA
     Dates: start: 20190805, end: 20201118
  8. DYSPORT [Suspect]
     Active Substance: ABOBOTULINUMTOXINA
     Indication: MUSCLE SPASTICITY
     Dosage: 450 U (ADDUCTOR LONGUS, ADDUCTOR MAGNUS, ADDUCTOR BREVIS, TIBIALIS POSTERIOR AND ANTERIOR TIBIALIS)
     Route: 030
     Dates: start: 20180518
  9. ORAPRED [Concomitant]
     Active Substance: PREDNISOLONE SODIUM PHOSPHATE
     Indication: WHEEZING
     Dates: start: 20191202, end: 20191207

REACTIONS (15)
  - Joint instability [Recovered/Resolved]
  - Muscular weakness [Recovered/Resolved]
  - Fall [Recovered/Resolved]
  - Keratosis pilaris [Recovered/Resolved]
  - Foot deformity [Recovered/Resolved]
  - Urticaria [Recovered/Resolved]
  - Off label use [Unknown]
  - Sleep terror [Recovered/Resolved]
  - Ear pain [Recovered/Resolved]
  - Dermatitis [Recovered/Resolved]
  - Otitis media acute [Recovered/Resolved]
  - Upper respiratory tract infection [Recovered/Resolved]
  - Upper respiratory tract infection [Recovered/Resolved]
  - Dental caries [Recovered/Resolved]
  - Upper respiratory tract infection [Recovered/Resolved]

NARRATIVE: CASE EVENT DATE: 20180518
